FAERS Safety Report 24279314 (Version 1)
Quarter: 2024Q3

REPORT INFORMATION
  Report Type: Spontaneous
  Country: BR (occurrence: BR)
  Receive Date: 20240903
  Receipt Date: 20240903
  Transmission Date: 20241017
  Serious: Yes (Hospitalization)
  Sender: APELLIS PHARMACEUTICALS
  Company Number: BR-BIOVITRUM-2023-BR-017332

PATIENT
  Weight: 60 kg

DRUGS (1)
  1. PEGCETACOPLAN [Suspect]
     Active Substance: PEGCETACOPLAN
     Indication: Product used for unknown indication
     Dosage: UNKNOWN
     Dates: start: 202303

REACTIONS (5)
  - Influenza [Unknown]
  - Urinary tract infection [Unknown]
  - Infusion site swelling [Recovered/Resolved]
  - Skin discolouration [Unknown]
  - Dermatitis contact [Unknown]
